FAERS Safety Report 10094715 (Version 2)
Quarter: 2014Q2

REPORT INFORMATION
  Report Type: Spontaneous
  Country: FR (occurrence: FR)
  Receive Date: 20140422
  Receipt Date: 20140422
  Transmission Date: 20141212
  Serious: Yes (Hospitalization)
  Sender: FDA-Public Use
  Company Number: FR-SA-200811873FR

PATIENT
  Age: 84 Year
  Sex: Male

DRUGS (4)
  1. LASILIX [Suspect]
     Indication: CARDIAC FAILURE
     Route: 048
  2. XATRAL [Suspect]
     Indication: PRODUCT USED FOR UNKNOWN INDICATION
     Route: 048
     Dates: end: 20080509
  3. COVERSYL [Suspect]
     Indication: CARDIAC FAILURE
     Route: 048
     Dates: end: 20080509
  4. ALDACTONE [Suspect]
     Indication: PRODUCT USED FOR UNKNOWN INDICATION
     Route: 048
     Dates: end: 20080510

REACTIONS (2)
  - Hepatitis [Unknown]
  - Mixed liver injury [Unknown]
